FAERS Safety Report 22209267 (Version 1)
Quarter: 2023Q2

REPORT INFORMATION
  Report Type: Spontaneous
  Country: FR (occurrence: FR)
  Receive Date: 20230413
  Receipt Date: 20230413
  Transmission Date: 20230722
  Serious: Yes (Death, Hospitalization, Disabling, Other)
  Sender: FDA-Public Use
  Company Number: None

PATIENT
  Age: 69 Year
  Sex: Male

DRUGS (1)
  1. AZACITIDINE [Suspect]
     Active Substance: AZACITIDINE
     Indication: Chemotherapy
     Dosage: FREQUENCY TEXT: NOT PROVIDED
     Route: 037
     Dates: start: 20210712, end: 20210712

REACTIONS (6)
  - Product administration error [Recovered/Resolved]
  - Confusional state [Recovered/Resolved]
  - Wrong product administered [Recovered/Resolved]
  - Incorrect route of product administration [Recovered/Resolved]
  - Nausea [Recovered/Resolved]
  - Lower motor neurone lesion [Fatal]

NARRATIVE: CASE EVENT DATE: 20210712
